FAERS Safety Report 5081115-4 (Version None)
Quarter: 2006Q3

REPORT INFORMATION
  Report Type: 
  Country: None (occurrence: None)
  Receive Date: 20060814
  Receipt Date: 20060814
  Transmission Date: 20061208
  Serious: Yes (Other)
  Sender: FDA-Public Use
  Company Number: None

PATIENT
  Age: 53 Year
  Sex: Female
  Weight: 67.1324 kg

DRUGS (1)
  1. VISIPAQUE [Suspect]
     Indication: COMPUTERISED TOMOGRAM THORAX
     Dosage: 100 FOR CT SCAN
     Dates: start: 20060510, end: 20060510

REACTIONS (3)
  - ERYTHEMA [None]
  - SOFT TISSUE DISORDER [None]
  - URTICARIA [None]
